FAERS Safety Report 5221786-2 (Version None)
Quarter: 2007Q1

REPORT INFORMATION
  Report Type: 
  Country: None (occurrence: None)
  Receive Date: 20070129
  Receipt Date: 20070112
  Transmission Date: 20070707
  Serious: Yes (Hospitalization)
  Sender: FDA-Public Use
  Company Number: US-JNJFOC-20070103289

PATIENT
  Age: 35 Year
  Sex: Female

DRUGS (6)
  1. TRAMADOL HCL [Suspect]
     Indication: INTENTIONAL DRUG MISUSE
     Route: 048
  2. FENTANYL [Suspect]
     Indication: INTENTIONAL DRUG MISUSE
     Route: 048
  3. BENZODIAZEPINE [Concomitant]
     Route: 065
  4. OTHER ANTICONVULSANT [Concomitant]
     Route: 065
  5. HYDROCODONE BITARTRATE + ACETAMINOPHEN [Concomitant]
     Route: 065
  6. OTHER ANTIHISTAMINE [Concomitant]
     Route: 065

REACTIONS (7)
  - AGITATION [None]
  - CARDIAC ENZYMES INCREASED [None]
  - INTENTIONAL DRUG MISUSE [None]
  - MIOSIS [None]
  - SUICIDE ATTEMPT [None]
  - TACHYCARDIA [None]
  - UNRESPONSIVE TO STIMULI [None]
